FAERS Safety Report 7758849-3 (Version None)
Quarter: 2011Q3

REPORT INFORMATION
  Report Type: 
  Country: None (occurrence: None)
  Receive Date: 20110825
  Receipt Date: 20110525
  Transmission Date: 20111222
  Serious: Yes (Other)
  Sender: FDA-Public Use
  Company Number: 328865

PATIENT
  Age: 70 Year
  Sex: Female
  Weight: 85.7 kg

DRUGS (3)
  1. NORVASC [Concomitant]
  2. LISINOPRIL [Concomitant]
  3. VICTOZA [Suspect]
     Indication: TYPE 2 DIABETES MELLITUS
     Dosage: 0.6 MG, BID, SUBCUTANEOUS
     Route: 058
     Dates: start: 20110505, end: 20110501

REACTIONS (7)
  - NAUSEA [None]
  - MALAISE [None]
  - ASTHENIA [None]
  - APHAGIA [None]
  - HEADACHE [None]
  - BLOOD GLUCOSE INCREASED [None]
  - HYPERTENSION [None]
